FAERS Safety Report 21344685 (Version 1)
Quarter: 2022Q3

REPORT INFORMATION
  Report Type: Report from Study
  Country: DE (occurrence: DE)
  Receive Date: 20220916
  Receipt Date: 20220916
  Transmission Date: 20221026
  Serious: Yes (Other)
  Sender: FDA-Public Use
  Company Number: DE-EMA-DD-20220831-216281-122932

PATIENT
  Sex: Male

DRUGS (1)
  1. METHOTREXATE [Suspect]
     Active Substance: METHOTREXATE
     Indication: Rheumatoid arthritis
     Dosage: UNK, THERAPY START DATE : ASKU , THERAPY END DATE : ASKU
     Route: 065

REACTIONS (4)
  - Hepatitis E [Unknown]
  - COVID-19 [Recovered/Resolved]
  - Pharyngeal inflammation [Unknown]
  - Pharyngitis [Recovered/Resolved]

NARRATIVE: CASE EVENT DATE: 20171227
